FAERS Safety Report 9711196 (Version 1)
Quarter: 2013Q4

REPORT INFORMATION
  Report Type: Spontaneous
  Country: US (occurrence: US)
  Receive Date: 20131126
  Receipt Date: 20131126
  Transmission Date: 20140711
  Serious: No
  Sender: FDA-Public Use
  Company Number: US-BRISTOL-MYERS SQUIBB COMPANY-19202142

PATIENT
  Age: 66 Year
  Sex: Female
  Weight: 117.91 kg

DRUGS (3)
  1. BYETTA [Suspect]
     Indication: TYPE 2 DIABETES MELLITUS
     Dates: start: 20130812, end: 20130819
  2. METFORMIN [Concomitant]
     Route: 048
  3. ACTOS [Concomitant]
     Route: 048

REACTIONS (8)
  - Malaise [Unknown]
  - Nausea [Unknown]
  - Vomiting [Unknown]
  - Headache [Unknown]
  - Diarrhoea [Unknown]
  - Rectal haemorrhage [Unknown]
  - Asthenia [Unknown]
  - Weight decreased [Unknown]
